FAERS Safety Report 7742308-8 (Version None)
Quarter: 2011Q3

REPORT INFORMATION
  Report Type: 
  Country: None (occurrence: None)
  Receive Date: 20110912
  Receipt Date: 20110829
  Transmission Date: 20111222
  Serious: Yes (Hospitalization, Other)
  Sender: FDA-Public Use
  Company Number: US-RANBAXY-2011RR-47367

PATIENT
  Sex: Female

DRUGS (9)
  1. LEVAQUIN [Suspect]
     Dosage: UNK
     Route: 065
     Dates: start: 20070811
  2. LEVAQUIN [Suspect]
     Dosage: 750 MG, UNK
     Route: 048
     Dates: start: 20080421
  3. LEVAQUIN [Suspect]
     Dosage: UNK
     Route: 065
     Dates: start: 20070811
  4. CIPROFLOXACIN [Suspect]
     Indication: INFECTION
     Dosage: 250 MG, UNK
     Route: 048
     Dates: start: 20091111
  5. LEVAQUIN [Suspect]
     Indication: BACTERIAL INFECTION
     Dosage: UNK
     Route: 048
     Dates: start: 20030101, end: 20070101
  6. LEVAQUIN [Suspect]
     Dosage: 500 MG, UNK
     Route: 048
     Dates: start: 20100311
  7. LEVAQUIN [Suspect]
     Dosage: UNK
     Route: 065
     Dates: start: 20071105
  8. LEVAQUIN [Suspect]
     Dosage: 500 MG, UNK
     Route: 048
     Dates: start: 20100512
  9. LEVAQUIN [Suspect]
     Dosage: 500 MG, UNK
     Route: 048
     Dates: start: 20090617

REACTIONS (8)
  - BURSITIS [None]
  - PAIN IN EXTREMITY [None]
  - ROTATOR CUFF SYNDROME [None]
  - TENDON RUPTURE [None]
  - TENOSYNOVITIS [None]
  - DRUG INEFFECTIVE [None]
  - MENTAL DISORDER [None]
  - TENDON DISORDER [None]
